FAERS Safety Report 24673608 (Version 1)
Quarter: 2024Q4

REPORT INFORMATION
  Report Type: Report from Study
  Country: CA (occurrence: CA)
  Receive Date: 20241128
  Receipt Date: 20241128
  Transmission Date: 20250115
  Serious: Yes (Hospitalization, Other)
  Sender: GENMAB
  Company Number: CA-ABBVIE-5982423

PATIENT
  Age: 88 Year
  Sex: Male

DRUGS (1)
  1. EPKINLY [Suspect]
     Active Substance: EPCORITAMAB-BYSP
     Indication: Diffuse large B-cell lymphoma
     Dosage: FORM STRENGTH- 48 MILLIGRAM FREQUENCY- 48MG DAY 15 AND DAY 22
     Route: 058
     Dates: start: 20241008

REACTIONS (4)
  - Hypoxia [Recovered/Resolved]
  - Hospitalisation [Unknown]
  - Pyrexia [Recovered/Resolved]
  - Cytokine release syndrome [Unknown]

NARRATIVE: CASE EVENT DATE: 20241001
